FAERS Safety Report 23908025 (Version 6)
Quarter: 2024Q3

REPORT INFORMATION
  Report Type: Spontaneous
  Country: CA (occurrence: CA)
  Receive Date: 20240528
  Receipt Date: 20240701
  Transmission Date: 20241016
  Serious: Yes (Other)
  Sender: PFIZER
  Company Number: CA-PFIZER INC-202400175323

PATIENT
  Age: 64 Year
  Sex: Male

DRUGS (4)
  1. CIBINQO [Suspect]
     Active Substance: ABROCITINIB
     Indication: Dermatitis atopic
     Dosage: 100 MG, 1X/DAY
     Route: 048
     Dates: start: 20230603, end: 202405
  2. DAPSONE [Concomitant]
     Active Substance: DAPSONE
     Indication: Gluten sensitivity
     Dosage: DIE OR BID AS NEEDED
     Route: 048
  3. BETAMETHASONE DIPROPIONATE\CLOTRIMAZOLE [Concomitant]
     Active Substance: BETAMETHASONE DIPROPIONATE\CLOTRIMAZOLE
     Dosage: UNK
  4. TRIAMCINOLONE ACETONIDE [Concomitant]
     Active Substance: TRIAMCINOLONE ACETONIDE
     Dosage: UNK

REACTIONS (11)
  - Angina pectoris [Recovering/Resolving]
  - Abdominal pain upper [Recovering/Resolving]
  - Blood pressure decreased [Recovering/Resolving]
  - Eating disorder [Recovering/Resolving]
  - Malaise [Recovering/Resolving]
  - Chest pain [Recovering/Resolving]
  - Increased upper airway secretion [Recovering/Resolving]
  - Viral infection [Recovering/Resolving]
  - Cough [Recovering/Resolving]
  - Post-acute COVID-19 syndrome [Recovering/Resolving]
  - Product dose omission in error [Unknown]

NARRATIVE: CASE EVENT DATE: 20240101
